FAERS Safety Report 6170752-1 (Version None)
Quarter: 2009Q2

REPORT INFORMATION
  Report Type: 
  Country: None (occurrence: None)
  Receive Date: 20090427
  Receipt Date: 20090424
  Transmission Date: 20091009
  Serious: Yes (Hospitalization)
  Sender: FDA-Public Use
  Company Number: TPA2009A00591

PATIENT
  Age: 55 Year
  Sex: Female
  Weight: 81.6475 kg

DRUGS (6)
  1. PIOGLITAZONE HCL [Suspect]
     Indication: TYPE 2 DIABETES MELLITUS
     Dosage: 30 MG, 1 IN 1 D, PER ORAL, 45 MG 1 IN 1 D, PER ORAL
     Route: 048
     Dates: end: 20090414
  2. PIOGLITAZONE HCL [Suspect]
     Indication: TYPE 2 DIABETES MELLITUS
     Dosage: 30 MG, 1 IN 1 D, PER ORAL, 45 MG 1 IN 1 D, PER ORAL
     Route: 048
     Dates: start: 20081027
  3. LOVASTATIN [Concomitant]
  4. LIBRIUM [Concomitant]
  5. BENTYL [Concomitant]
  6. ENALAPRIL/HCTZ (HYDROCHLOROTHIAZIDE, ENALAPRIL) [Concomitant]

REACTIONS (4)
  - CHEST PAIN [None]
  - HYPOAESTHESIA [None]
  - MUSCULAR WEAKNESS [None]
  - PARAESTHESIA [None]
